FAERS Safety Report 11499267 (Version 2)
Quarter: 2015Q3

REPORT INFORMATION
  Report Type: Spontaneous
  Country: TN (occurrence: TN)
  Receive Date: 20150913
  Receipt Date: 20150921
  Transmission Date: 20151125
  Serious: Yes (Death, Hospitalization)
  Sender: FDA-Public Use
  Company Number: TN-AMGEN-TUNSP2015093447

PATIENT
  Age: 74 Year
  Sex: Male

DRUGS (1)
  1. ENBREL [Suspect]
     Active Substance: ETANERCEPT
     Indication: RHEUMATOID ARTHRITIS
     Dosage: UNK
     Route: 065

REACTIONS (3)
  - Death [Fatal]
  - Hypersensitivity [Recovered/Resolved]
  - Alveolitis allergic [Recovered/Resolved]

NARRATIVE: CASE EVENT DATE: 20150906
